FAERS Safety Report 4692618-6 (Version None)
Quarter: 2005Q2

REPORT INFORMATION
  Report Type: 
  Country: None (occurrence: None)
  Receive Date: 20050617
  Receipt Date: 20050512
  Transmission Date: 20051028
  Serious: Yes (Death, Hospitalization)
  Sender: FDA-Public Use
  Company Number: FR-AMGEN-UK132770

PATIENT
  Age: 66 Year
  Sex: Male
  Weight: 70 kg

DRUGS (8)
  1. NEULASTA [Suspect]
     Indication: CHEMOTHERAPY
     Route: 058
     Dates: start: 20050312, end: 20050312
  2. GEMZAR [Suspect]
     Route: 042
     Dates: start: 20050311, end: 20050401
  3. NOVATREX [Suspect]
     Route: 048
     Dates: start: 20010201
  4. CORTANCYL [Concomitant]
     Route: 065
     Dates: start: 20000501
  5. SPECIAFOLDINE [Concomitant]
     Route: 065
     Dates: start: 20010201
  6. ACTONEL [Concomitant]
     Route: 065
     Dates: start: 20010301
  7. DIANTALVIC [Concomitant]
     Route: 065
  8. CISPLATIN [Concomitant]
     Route: 065

REACTIONS (3)
  - DECREASED APPETITE [None]
  - INTERSTITIAL LUNG DISEASE [None]
  - PYREXIA [None]
